FAERS Safety Report 8196877-7 (Version None)
Quarter: 2012Q1

REPORT INFORMATION
  Report Type: 
  Country: None (occurrence: None)
  Receive Date: 20120309
  Receipt Date: 20120305
  Transmission Date: 20120608
  Serious: Yes (Other)
  Sender: FDA-Public Use
  Company Number: US-BAYER-2012-022470

PATIENT
  Age: 32 Year
  Sex: Female

DRUGS (3)
  1. BACTRIM [Concomitant]
  2. YASMIN [Suspect]
     Route: 048
  3. WELLBUTRIN [Concomitant]
     Indication: DEPRESSION

REACTIONS (1)
  - DEEP VEIN THROMBOSIS [None]
